FAERS Safety Report 5953289-1 (Version None)
Quarter: 2008Q4

REPORT INFORMATION
  Report Type: 
  Country: None (occurrence: None)
  Receive Date: 20081114
  Receipt Date: 20081107
  Transmission Date: 20090506
  Serious: Yes (Other)
  Sender: FDA-Public Use
  Company Number: PHNU2008DE01402

PATIENT
  Sex: Male

DRUGS (3)
  1. DIOVAN [Suspect]
     Dosage: 1 DF, ONCE/SINGLE
     Route: 048
  2. DIOVAN [Suspect]
     Dosage: 0.5 DF, QD
     Route: 048
  3. DIOVAN [Suspect]
     Dosage: 160 MG, QD
     Route: 048
     Dates: start: 20080322, end: 20080324

REACTIONS (3)
  - MEDICATION ERROR [None]
  - URINARY RETENTION [None]
  - URINARY TRACT INFECTION [None]
